FAERS Safety Report 23964097 (Version 1)
Quarter: 2024Q2

REPORT INFORMATION
  Report Type: Spontaneous
  Country: US (occurrence: None)
  Receive Date: 20240611
  Receipt Date: 20240611
  Transmission Date: 20240716
  Serious: Yes (Hospitalization)
  Sender: FDA-Public Use
  Company Number: None

PATIENT
  Age: 42 Year
  Sex: Female

DRUGS (1)
  1. EPIDIOLEX [Suspect]
     Active Substance: CANNABIDIOL
     Indication: Generalised tonic-clonic seizure
     Dosage: FREQUENCY : DAILY;?
     Route: 048
     Dates: start: 20231103

REACTIONS (2)
  - Seizure [None]
  - Skin laceration [None]

NARRATIVE: CASE EVENT DATE: 20240519
